FAERS Safety Report 7405051-0 (Version None)
Quarter: 2011Q2

REPORT INFORMATION
  Report Type: 
  Country: None (occurrence: None)
  Receive Date: 20110404
  Receipt Date: 20110324
  Transmission Date: 20111010
  Serious: Yes (Hospitalization)
  Sender: FDA-Public Use
  Company Number: 872756

PATIENT
  Age: 34 Year
  Sex: Male
  Weight: 109.5 kg

DRUGS (6)
  1. LISINOPRIL [Concomitant]
  2. ACETAMINOPHEN AND CODEINE PHOSPHATE [Concomitant]
  3. (METFORMIN) [Concomitant]
  4. METHOTREXATE [Suspect]
     Dosage: 15 MG MILLIGRAM(S), 1 WEEK
     Dates: start: 20080101
  5. FOLIC ACID [Suspect]
     Indication: PRODUCT USED FOR UNKNOWN INDICATION
     Dosage: 5 MG MILLIGRAM(S)
  6. ADALIMUMAB [Suspect]
     Indication: PSORIASIS
     Dosage: 40 MG MILIILGRAMS, SUBCUTANIOUS
     Route: 058
     Dates: start: 20081201

REACTIONS (1)
  - OSTEOMYELITIS [None]
